FAERS Safety Report 5722504-1 (Version None)
Quarter: 2008Q2

REPORT INFORMATION
  Report Type: 
  Country: None (occurrence: None)
  Receive Date: 20080429
  Receipt Date: 20070810
  Transmission Date: 20081010
  Serious: No
  Sender: FDA-Public Use
  Company Number: US-ASTRAZENECA-2007UW19460

PATIENT
  Age: 37 Year
  Sex: Male
  Weight: 87.5 kg

DRUGS (3)
  1. NEXIUM [Suspect]
     Indication: GASTROOESOPHAGEAL REFLUX DISEASE
     Route: 048
     Dates: start: 20070812
  2. QUINAPRIL [Concomitant]
     Indication: HYPERTENSION
  3. XANAX [Concomitant]
     Indication: ANXIETY

REACTIONS (4)
  - DRY MOUTH [None]
  - HEADACHE [None]
  - HYPOAESTHESIA ORAL [None]
  - SENSATION OF FOREIGN BODY [None]
